FAERS Safety Report 6453359-8 (Version None)
Quarter: 2009Q4

REPORT INFORMATION
  Report Type: 
  Country: None (occurrence: None)
  Receive Date: 20091123
  Receipt Date: 20091123
  Transmission Date: 20100525
  Serious: Yes (Life-Threatening, Other)
  Sender: FDA-Public Use
  Company Number: None

PATIENT
  Age: 60 Year
  Sex: Female
  Weight: 132.4503 kg

DRUGS (1)
  1. LOVAZA [Suspect]
     Indication: BLOOD TRIGLYCERIDES INCREASED
     Dosage: 2 CAPSULES 2X DAILY PO
     Route: 048
     Dates: start: 20091015, end: 20091110

REACTIONS (2)
  - ABNORMAL FAECES [None]
  - DIARRHOEA [None]
